FAERS Safety Report 10257580 (Version 2)
Quarter: 2014Q3

REPORT INFORMATION
  Report Type: Spontaneous
  Country: FI (occurrence: FI)
  Receive Date: 20140625
  Receipt Date: 20140710
  Transmission Date: 20150326
  Serious: Yes (Hospitalization)
  Sender: FDA-Public Use
  Company Number: FI-ROCHE-1424249

PATIENT
  Age: 66 Year

DRUGS (9)
  1. PERJETA [Suspect]
     Active Substance: PERTUZUMAB
     Indication: METASTASES TO LIVER
     Route: 042
     Dates: start: 20140602
  2. HERCEPTIN [Suspect]
     Active Substance: TRASTUZUMAB
     Indication: METASTASES TO BONE
     Route: 042
     Dates: start: 20140623
  3. HERCEPTIN [Suspect]
     Active Substance: TRASTUZUMAB
     Indication: METASTASES TO LIVER
     Route: 065
     Dates: start: 20140602
  4. DOCETAXEL [Concomitant]
     Active Substance: DOCETAXEL
     Indication: METASTASES TO BONE
     Route: 065
     Dates: start: 20140623
  5. PERJETA [Suspect]
     Active Substance: PERTUZUMAB
     Indication: HER-2 POSITIVE BREAST CANCER
     Route: 042
     Dates: start: 20140512
  6. DOCETAXEL [Concomitant]
     Active Substance: DOCETAXEL
     Indication: METASTASES TO LIVER
     Route: 065
     Dates: start: 20140602
  7. DOCETAXEL [Concomitant]
     Active Substance: DOCETAXEL
     Indication: HER-2 POSITIVE BREAST CANCER
     Route: 042
     Dates: start: 20140512
  8. PERJETA [Suspect]
     Active Substance: PERTUZUMAB
     Indication: METASTASES TO BONE
     Route: 042
     Dates: start: 20140623
  9. HERCEPTIN [Suspect]
     Active Substance: TRASTUZUMAB
     Indication: HER-2 POSITIVE BREAST CANCER
     Route: 065
     Dates: start: 20140512

REACTIONS (4)
  - Infection [Recovered/Resolved]
  - Febrile neutropenia [Recovered/Resolved]
  - Fluid imbalance [Recovered/Resolved]
  - Diarrhoea [Recovered/Resolved]

NARRATIVE: CASE EVENT DATE: 20140520
